FAERS Safety Report 16322341 (Version 1)
Quarter: 2019Q2

REPORT INFORMATION
  Report Type: Spontaneous
  Country: US (occurrence: US)
  Receive Date: 20190516
  Receipt Date: 20190516
  Transmission Date: 20190711
  Serious: Yes (Other)
  Sender: FDA-Public Use
  Company Number: US-TEVA-2019-US-1049660

PATIENT
  Age: 53 Year
  Sex: Female

DRUGS (3)
  1. FUROSEMIDE. [Interacting]
     Active Substance: FUROSEMIDE
     Indication: DIURETIC THERAPY
     Dosage: HIGH DOSE
     Route: 042
  2. METOPROLOL. [Suspect]
     Active Substance: METOPROLOL
     Indication: DRUG THERAPY
     Dosage: THE DOSE OF METOPROLOL WAS UP-TITRATED ONCE SHE WAS WELL COMPENSATED (BEFORE INITIATION OF IVABRA...
     Route: 065
  3. IVABRADINE [Interacting]
     Active Substance: IVABRADINE
     Indication: CARDIAC FAILURE
     Route: 065

REACTIONS (3)
  - Drug interaction [Unknown]
  - Torsade de pointes [Recovered/Resolved]
  - Syncope [Recovered/Resolved]
